FAERS Safety Report 5607712-2 (Version None)
Quarter: 2008Q1

REPORT INFORMATION
  Report Type: 
  Country: None (occurrence: None)
  Receive Date: 20080125
  Receipt Date: 20071204
  Transmission Date: 20080703
  Serious: No
  Sender: FDA-Public Use
  Company Number: 8029223

PATIENT
  Age: 10 Year
  Sex: Male

DRUGS (1)
  1. EQUASYM [Suspect]

REACTIONS (1)
  - CARDIAC DISORDER [None]
